FAERS Safety Report 24365608 (Version 1)
Quarter: 2024Q3

REPORT INFORMATION
  Report Type: Report from Study
  Country: US (occurrence: US)
  Receive Date: 20240926
  Receipt Date: 20240926
  Transmission Date: 20241017
  Serious: No
  Sender: SANDOZ
  Company Number: US-SANDOZ-SDZ2024US031137

PATIENT

DRUGS (2)
  1. OMNITROPE [Suspect]
     Active Substance: SOMATROPIN
     Indication: Product used for unknown indication
     Dosage: 1.9 MG 2 DOSE EVERY N/A N/A
     Route: 065
     Dates: start: 20230912
  2. OMNITROPE [Suspect]
     Active Substance: SOMATROPIN
     Indication: Product used for unknown indication
     Dosage: 1.9 MG 2 DOSE EVERY N/A N/A
     Route: 065
     Dates: start: 20230912

REACTIONS (2)
  - Injection site pain [Unknown]
  - Device issue [Unknown]
